FAERS Safety Report 21766123 (Version 2)
Quarter: 2023Q1

REPORT INFORMATION
  Report Type: Report from Study
  Country: US (occurrence: US)
  Receive Date: 20221222
  Receipt Date: 20230222
  Transmission Date: 20230417
  Serious: No
  Sender: FDA-Public Use
  Company Number: US-BIOVITRUM-2022US15160

PATIENT
  Sex: Male

DRUGS (3)
  1. ORFADIN [Suspect]
     Active Substance: NITISINONE
     Indication: Tyrosinaemia
     Dates: start: 20140425
  2. PRO PHREE [Concomitant]
  3. TYR ANAMIX NEXT [Concomitant]

REACTIONS (1)
  - Fatigue [Unknown]
